FAERS Safety Report 5838425-X (Version None)
Quarter: 2008Q3

REPORT INFORMATION
  Report Type: 
  Country: None (occurrence: None)
  Receive Date: 20080808
  Receipt Date: 20080801
  Transmission Date: 20090109
  Serious: Yes (Other)
  Sender: FDA-Public Use
  Company Number: GB-AVENTIS-200817335GDDC

PATIENT
  Age: 35 Year
  Sex: Female
  Weight: 86 kg

DRUGS (1)
  1. METRONIDAZOLE HCL [Suspect]
     Route: 048
     Dates: start: 20080710, end: 20080715

REACTIONS (3)
  - HEADACHE [None]
  - MYODESOPSIA [None]
  - VISUAL IMPAIRMENT [None]
